APPROVED DRUG PRODUCT: JAIMIESS
Active Ingredient: ETHINYL ESTRADIOL; LEVONORGESTREL
Strength: 0.03MG,0.01MG;0.15MG,N/A
Dosage Form/Route: TABLET;ORAL
Application: A203770 | Product #001 | TE Code: AB
Applicant: XIROMED PHARMA ESPANA SL
Approved: Dec 27, 2017 | RLD: No | RS: No | Type: RX